FAERS Safety Report 16246592 (Version 1)
Quarter: 2019Q2

REPORT INFORMATION
  Report Type: Spontaneous
  Country: IT (occurrence: IT)
  Receive Date: 20190427
  Receipt Date: 20190427
  Transmission Date: 20190711
  Serious: Yes (Other)
  Sender: FDA-Public Use
  Company Number: IT-TEVA-2019-IT-1042045

PATIENT
  Age: 57 Year
  Sex: Male
  Weight: 76 kg

DRUGS (2)
  1. GEMCITABINE [Concomitant]
     Active Substance: GEMCITABINE\GEMCITABINE HYDROCHLORIDE
     Indication: BILE DUCT ADENOCARCINOMA
     Route: 042
     Dates: start: 20181122, end: 20190307
  2. CISPLATIN. [Suspect]
     Active Substance: CISPLATIN
     Indication: BILE DUCT ADENOCARCINOMA
     Route: 042
     Dates: start: 20181122, end: 20181220

REACTIONS (1)
  - Neurosensory hypoacusis [Not Recovered/Not Resolved]

NARRATIVE: CASE EVENT DATE: 20190103
